FAERS Safety Report 17513804 (Version 1)
Quarter: 2020Q1

REPORT INFORMATION
  Report Type: Spontaneous
  Country: NL (occurrence: NL)
  Receive Date: 20200306
  Receipt Date: 20200306
  Transmission Date: 20200409
  Serious: Yes (Hospitalization)
  Sender: FDA-Public Use
  Company Number: NL-TOLMAR, INC.-20NL020588

PATIENT
  Sex: Male

DRUGS (3)
  1. ELIGARD [Suspect]
     Active Substance: LEUPROLIDE ACETATE
     Indication: PROSTATIC OPERATION
     Dosage: 45 MG, Q 6 MONTH
     Route: 065
  2. ELIGARD [Suspect]
     Active Substance: LEUPROLIDE ACETATE
     Dosage: 45 MG, Q 6 MONTH
     Route: 065
     Dates: start: 20200211
  3. XTANDI [Concomitant]
     Active Substance: ENZALUTAMIDE
     Indication: PRODUCT USED FOR UNKNOWN INDICATION

REACTIONS (5)
  - Hot flush [Recovered/Resolved]
  - Product use in unapproved indication [Unknown]
  - Chest pain [Not Recovered/Not Resolved]
  - Weight increased [Recovered/Resolved]
  - Sensory disturbance [Recovered/Resolved]
